FAERS Safety Report 7495886-0 (Version None)
Quarter: 2011Q2

REPORT INFORMATION
  Report Type: 
  Country: None (occurrence: None)
  Receive Date: 20110523
  Receipt Date: 20110511
  Transmission Date: 20111010
  Serious: Yes (Death, Hospitalization, Other)
  Sender: FDA-Public Use
  Company Number: SE-CELGENEUS-150-21880-11042194

PATIENT
  Sex: Female

DRUGS (14)
  1. DEXACORTAL [Concomitant]
     Indication: MULTIPLE MYELOMA
     Route: 065
     Dates: start: 20081001, end: 20110101
  2. ALLOPURINOL [Concomitant]
     Route: 048
  3. REVLIMID [Suspect]
     Indication: MULTIPLE MYELOMA
     Dosage: 25 MILLIGRAM
     Route: 048
     Dates: start: 20081022, end: 20110101
  4. BETNOVAT [Concomitant]
     Route: 061
  5. NASONEX [Concomitant]
     Indication: SINUSITIS
     Route: 045
  6. KAVEPENIN [Concomitant]
     Indication: SINUSITIS
     Route: 048
  7. VISCOTEARS [Concomitant]
     Indication: EYE IRRITATION
     Route: 047
  8. BETAPRED [Concomitant]
     Indication: RESPIRATORY TRACT INFECTION
     Route: 048
  9. OMEPRAZOLE [Concomitant]
     Route: 048
  10. ACYCLOVIR [Concomitant]
     Route: 048
  11. AMOXICILLIN AND CLAVULANATE POTASSIUM [Concomitant]
     Indication: INFECTION
     Dosage: 500/125
     Route: 048
  12. MYCOSTATIN [Concomitant]
     Indication: FUNGAL INFECTION
     Route: 048
  13. TRANON [Concomitant]
     Route: 048
  14. AMIMOX [Concomitant]
     Route: 048

REACTIONS (3)
  - MULTIPLE MYELOMA [None]
  - SEPSIS [None]
  - ACUTE MYELOID LEUKAEMIA [None]
